FAERS Safety Report 25706070 (Version 1)
Quarter: 2025Q3

REPORT INFORMATION
  Report Type: Spontaneous
  Country: US (occurrence: US)
  Receive Date: 20250820
  Receipt Date: 20250820
  Transmission Date: 20251021
  Serious: No
  Sender: PFIZER
  Company Number: US-PFIZER INC-PV202500100645

PATIENT
  Age: 24 Year
  Sex: Female

DRUGS (15)
  1. DEMEROL [Suspect]
     Active Substance: MEPERIDINE HYDROCHLORIDE
  2. ASPIRIN [Concomitant]
     Active Substance: ASPIRIN
  3. AMLODIPINE [Concomitant]
     Active Substance: AMLODIPINE BESYLATE
  4. OXYBUTYNIN [Concomitant]
     Active Substance: OXYBUTYNIN
  5. ELIQUIS [Concomitant]
     Active Substance: APIXABAN
  6. BENAZEPRIL [Concomitant]
     Active Substance: BENAZEPRIL HYDROCHLORIDE
  7. PRAVASTATIN [Concomitant]
     Active Substance: PRAVASTATIN
  8. PRAMIPEXOLE [Concomitant]
     Active Substance: PRAMIPEXOLE
  9. HYDROCODONE [Concomitant]
     Active Substance: HYDROCODONE
  10. NITROGLYCERIN [Concomitant]
     Active Substance: NITROGLYCERIN
  11. TORSEMIDE [Concomitant]
     Active Substance: TORSEMIDE
  12. METOPROLOL [Concomitant]
     Active Substance: METOPROLOL
  13. DIGOXIN [Concomitant]
     Active Substance: DIGOXIN
  14. VITAMIN D NOS [Concomitant]
     Active Substance: CHOLECALCIFEROL\ERGOCALCIFEROL
  15. MELOXICAM [Concomitant]
     Active Substance: MELOXICAM

REACTIONS (1)
  - Urticaria [Not Recovered/Not Resolved]

NARRATIVE: CASE EVENT DATE: 19650101
